FAERS Safety Report 16647227 (Version 1)
Quarter: 2019Q3

REPORT INFORMATION
  Report Type: Spontaneous
  Country: US (occurrence: US)
  Receive Date: 20190617
  Receipt Date: 20190617
  Transmission Date: 20191004
  Serious: No
  Sender: FDA-Public Use
  Company Number: None

PATIENT
  Age: 70 Year
  Sex: Female

DRUGS (2)
  1. VERZENIO [Suspect]
     Active Substance: ABEMACICLIB
     Route: 048
     Dates: start: 20190306
  2. VERZENIO [Suspect]
     Active Substance: ABEMACICLIB
     Indication: BREAST CANCER METASTATIC
     Route: 048
     Dates: start: 20190205

REACTIONS (12)
  - Diarrhoea [None]
  - Haemorrhage [None]
  - Renal failure [None]
  - Hepatorenal syndrome [None]
  - Septic shock [None]
  - Toxicity to various agents [None]
  - Bile duct obstruction [None]
  - Pain [None]
  - Pancytopenia [None]
  - Hepatic failure [None]
  - Dialysis [None]
  - Dehydration [None]
